FAERS Safety Report 12139139 (Version 1)
Quarter: 2016Q1

REPORT INFORMATION
  Report Type: Report from Study
  Country: US (occurrence: US)
  Receive Date: 20160302
  Receipt Date: 20160302
  Transmission Date: 20160526
  Serious: Yes (Death)
  Sender: FDA-Public Use
  Company Number: US-ASTRAZENECA-2016SE20373

PATIENT
  Age: 109 Day
  Sex: Male

DRUGS (1)
  1. SYNAGIS [Suspect]
     Active Substance: PALIVIZUMAB
     Indication: ATRIOVENTRICULAR SEPTAL DEFECT
     Route: 030

REACTIONS (2)
  - Product use issue [Unknown]
  - Death [Fatal]

NARRATIVE: CASE EVENT DATE: 20160213
